FAERS Safety Report 25878459 (Version 1)
Quarter: 2025Q4

REPORT INFORMATION
  Report Type: Spontaneous
  Country: US (occurrence: US)
  Receive Date: 20251003
  Receipt Date: 20251003
  Transmission Date: 20260117
  Serious: Yes (Hospitalization, Other)
  Sender: NOVO NORDISK
  Company Number: US-NOVOPROD-1531515

PATIENT
  Age: 65 Year
  Sex: Male

DRUGS (3)
  1. OZEMPIC [Suspect]
     Active Substance: SEMAGLUTIDE
     Indication: Type 2 diabetes mellitus
     Dosage: 2 MG WEEKLY (DISCONTINUED)
     Route: 058
     Dates: start: 202503, end: 20250907
  2. OZEMPIC [Suspect]
     Active Substance: SEMAGLUTIDE
     Dosage: 8 MG
     Route: 058
  3. OZEMPIC [Suspect]
     Active Substance: SEMAGLUTIDE
     Dosage: 2 MG WEEKLY (RESTARTED)
     Route: 058
     Dates: start: 20250918

REACTIONS (6)
  - Shoulder operation [Unknown]
  - Constipation [Recovering/Resolving]
  - Abdominal pain [Recovering/Resolving]
  - Pain [Unknown]
  - Abdominal discomfort [Unknown]
  - Overdose [Unknown]

NARRATIVE: CASE EVENT DATE: 20250918
